FAERS Safety Report 19068675 (Version 1)
Quarter: 2021Q1

REPORT INFORMATION
  Report Type: Spontaneous
  Country: BG (occurrence: BG)
  Receive Date: 20210329
  Receipt Date: 20210329
  Transmission Date: 20210420
  Serious: Yes (Other)
  Sender: FDA-Public Use
  Company Number: BG-INCYTE CORPORATION-2020IN013339

PATIENT

DRUGS (1)
  1. JAKAVI [Suspect]
     Active Substance: RUXOLITINIB
     Indication: MYELOFIBROSIS
     Dosage: 40 MG, QD
     Route: 048
     Dates: start: 20190301

REACTIONS (6)
  - Leukocytosis [Recovering/Resolving]
  - Thrombocytosis [Recovering/Resolving]
  - Basophilia [Recovering/Resolving]
  - Lymphopenia [Recovering/Resolving]
  - Anaemia [Recovering/Resolving]
  - Blood alkaline phosphatase decreased [Recovering/Resolving]

NARRATIVE: CASE EVENT DATE: 20200106
